FAERS Safety Report 24375858 (Version 1)
Quarter: 2024Q3

REPORT INFORMATION
  Report Type: Spontaneous
  Country: US (occurrence: US)
  Receive Date: 20240928
  Receipt Date: 20240928
  Transmission Date: 20241017
  Serious: No
  Sender: MERCK
  Company Number: US-009507513-2409USA002457

PATIENT
  Age: 75 Year
  Sex: Male

DRUGS (6)
  1. KEYTRUDA [Suspect]
     Active Substance: PEMBROLIZUMAB
     Indication: Thyroid cancer
  2. CABOMETYX [Suspect]
     Active Substance: CABOZANTINIB S-MALATE
     Indication: Thyroid cancer
     Dosage: 20 MILLIGRAM, QOD
     Route: 048
     Dates: start: 20240725
  3. CABOMETYX [Suspect]
     Active Substance: CABOZANTINIB S-MALATE
     Dosage: 20 MILLIGRAM, QD, FOR 5 DAYS AND 2 DAYS OFF
     Route: 048
  4. SYNTHROID [Concomitant]
     Active Substance: LEVOTHYROXINE SODIUM
  5. AMLODIPINE [Concomitant]
     Active Substance: AMLODIPINE BESYLATE
  6. EPLERENONE [Concomitant]
     Active Substance: EPLERENONE

REACTIONS (5)
  - Pruritus [Unknown]
  - Fatigue [Unknown]
  - Blood pressure increased [Unknown]
  - Tongue geographic [Recovering/Resolving]
  - Taste disorder [Unknown]
